FAERS Safety Report 12463630 (Version 2)
Quarter: 2016Q3

REPORT INFORMATION
  Report Type: Spontaneous
  Country: US (occurrence: US)
  Receive Date: 20160614
  Receipt Date: 20160825
  Transmission Date: 20161109
  Serious: No
  Sender: FDA-Public Use
  Company Number: US-PFIZER INC-2016266643

PATIENT
  Age: 59 Year
  Sex: Female
  Weight: 75.3 kg

DRUGS (7)
  1. MEGA RED [Concomitant]
     Indication: SUPPLEMENTATION THERAPY
     Dosage: UNK
  2. GABAPENTIN. [Suspect]
     Active Substance: GABAPENTIN
     Dosage: ONE 600MG TABLET THREE TIMES A DAY
     Route: 048
  3. VITAMIN D3 [Concomitant]
     Active Substance: CHOLECALCIFEROL
     Indication: VITAMIN D DEFICIENCY
     Dosage: 4000 IU, DAILY, TWO 2000IU TABLETS IN EVENING
     Route: 048
  4. GABAPENTIN. [Suspect]
     Active Substance: GABAPENTIN
     Indication: NEUROPATHY PERIPHERAL
     Dosage: ONE 300MG TABLET THREE TIMES A DAY
     Route: 048
     Dates: start: 2015
  5. GABAPENTIN. [Suspect]
     Active Substance: GABAPENTIN
     Dosage: 1/2 600MG IN THE MORNING, 1/2 600MG IN THE AFTERNOON, ONE 600MG IN THE EVENING
     Route: 048
     Dates: end: 2016
  6. VITAMIN B12 [Concomitant]
     Active Substance: CYANOCOBALAMIN
     Indication: VITAMIN B12 ABNORMAL
     Dosage: ONE PILL ONCE EVERY EVENING, DOSAGE: 2000 PER PILL
     Route: 048
  7. GABAPENTIN. [Suspect]
     Active Substance: GABAPENTIN
     Indication: NEUROPATHY PERIPHERAL
     Dosage: 300 MG, 3X/DAY
     Route: 048

REACTIONS (9)
  - Condition aggravated [Unknown]
  - Pain [Unknown]
  - Pruritus [Unknown]
  - Gait disturbance [Unknown]
  - Rash erythematous [Recovering/Resolving]
  - Eczema [Unknown]
  - Drug ineffective [Unknown]
  - Drug dose omission [Unknown]
  - Rash [Not Recovered/Not Resolved]
